FAERS Safety Report 5462325-0 (Version None)
Quarter: 2007Q3

REPORT INFORMATION
  Report Type: 
  Country: None (occurrence: None)
  Receive Date: 20070920
  Receipt Date: 20070626
  Transmission Date: 20080115
  Serious: No
  Sender: FDA-Public Use
  Company Number: A0659915A

PATIENT
  Age: 50 Year
  Sex: Male

DRUGS (1)
  1. ABREVA [Suspect]

REACTIONS (4)
  - DRUG INEFFECTIVE [None]
  - INTENTIONAL DRUG MISUSE [None]
  - LIP DRY [None]
  - LIP EXFOLIATION [None]
